FAERS Safety Report 9899512 (Version 3)
Quarter: 2014Q1

REPORT INFORMATION
  Report Type: Spontaneous
  Country: US (occurrence: US)
  Receive Date: 20140214
  Receipt Date: 20140320
  Transmission Date: 20141002
  Serious: Yes (Hospitalization)
  Sender: FDA-Public Use
  Company Number: US-LUNDBECK-DKLU1096926

PATIENT
  Age: 1 Year
  Sex: Male
  Weight: 12 kg

DRUGS (15)
  1. SABRIL (FOR ORAL SOLUTION) [Suspect]
     Indication: INFANTILE SPASMS
     Dates: start: 20130430
  2. SABRIL (FOR ORAL SOLUTION) [Suspect]
  3. SABRIL (FOR ORAL SOLUTION) [Suspect]
  4. SABRIL (FOR ORAL SOLUTION) [Suspect]
  5. SABRIL (FOR ORAL SOLUTION) [Suspect]
  6. SABRIL (FOR ORAL SOLUTION) [Suspect]
  7. VORICONAZOLE [Suspect]
     Indication: PRODUCT USED FOR UNKNOWN INDICATION
  8. ONFI [Concomitant]
     Indication: PRODUCT USED FOR UNKNOWN INDICATION
  9. CLONAZEPAM [Concomitant]
     Indication: PRODUCT USED FOR UNKNOWN INDICATION
  10. BANZEL [Concomitant]
     Indication: PRODUCT USED FOR UNKNOWN INDICATION
  11. TOPAMAX [Concomitant]
     Indication: PRODUCT USED FOR UNKNOWN INDICATION
  12. ERYTHROMYCIN [Concomitant]
     Indication: PRODUCT USED FOR UNKNOWN INDICATION
  13. MELATONIN [Concomitant]
     Indication: PRODUCT USED FOR UNKNOWN INDICATION
  14. MIRALAX [Concomitant]
     Indication: PRODUCT USED FOR UNKNOWN INDICATION
  15. PYRIDOXINE [Concomitant]
     Indication: PRODUCT USED FOR UNKNOWN INDICATION

REACTIONS (3)
  - Gamma-glutamyltransferase increased [Recovering/Resolving]
  - Blood alkaline phosphatase increased [Recovered/Resolved]
  - Respiratory syncytial virus infection [Recovered/Resolved]
